FAERS Safety Report 5917043-9 (Version None)
Quarter: 2008Q4

REPORT INFORMATION
  Report Type: 
  Country: None (occurrence: None)
  Receive Date: 20081009
  Receipt Date: 20081009
  Transmission Date: 20090506
  Serious: No
  Sender: FDA-Public Use
  Company Number: None

PATIENT
  Age: 52 Year
  Sex: Female
  Weight: 74.8435 kg

DRUGS (2)
  1. PHENAZOPYRIDINE HCL TAB [Suspect]
     Indication: DYSURIA
     Dosage: 2 TABLETS 1X PO
     Route: 048
     Dates: start: 20081008, end: 20081008
  2. PHENAZOPYRIDINE HCL TAB [Suspect]
     Indication: POLLAKIURIA
     Dosage: 2 TABLETS 1X PO
     Route: 048
     Dates: start: 20081008, end: 20081008

REACTIONS (3)
  - COUGH [None]
  - DRUG HYPERSENSITIVITY [None]
  - THIRST [None]
